FAERS Safety Report 5137117-2 (Version None)
Quarter: 2006Q4

REPORT INFORMATION
  Report Type: 
  Country: None (occurrence: None)
  Receive Date: 20061030
  Receipt Date: 20030113
  Transmission Date: 20070319
  Serious: No
  Sender: FDA-Public Use
  Company Number: US-GLAXOSMITHKLINE-A0392096A

PATIENT
  Age: 68 Year
  Sex: Female

DRUGS (13)
  1. ADVAIR HFA [Suspect]
     Indication: ASTHMA
     Dosage: 1PUFF TWICE PER DAY
     Route: 055
  2. MAXAIR [Concomitant]
  3. PRILOSEC [Concomitant]
  4. NORVASC [Concomitant]
  5. VITAMINS [Concomitant]
  6. ANTIVERT [Concomitant]
  7. PRAVACHOL [Concomitant]
  8. CALCIUM GLUCONATE [Concomitant]
  9. ASCORBIC ACID [Concomitant]
  10. TYLENOL [Concomitant]
  11. TYLENOL [Concomitant]
  12. ACIPHEX [Concomitant]
     Indication: VERTIGO
  13. MECLIZINE [Concomitant]
     Indication: BLOOD CHOLESTEROL INCREASED

REACTIONS (3)
  - DYSPHONIA [None]
  - DYSPNOEA [None]
  - PHARMACEUTICAL PRODUCT COMPLAINT [None]
